FAERS Safety Report 8339398-0 (Version None)
Quarter: 2012Q2

REPORT INFORMATION
  Report Type: 
  Country: None (occurrence: None)
  Receive Date: 20120507
  Receipt Date: 20120424
  Transmission Date: 20120825
  Serious: Yes (Other)
  Sender: FDA-Public Use
  Company Number: IT-JNJFOC-20100906231

PATIENT
  Sex: Female

DRUGS (6)
  1. INFLIXIMAB, RECOMBINANT [Suspect]
     Indication: CROHN'S DISEASE
     Dosage: AT 0-2-6 WEEKS
     Route: 042
  2. STEROIDS NOS [Concomitant]
     Route: 065
  3. INFLIXIMAB, RECOMBINANT [Suspect]
     Dosage: TIMES 3 DOSES
     Route: 042
  4. EN [Concomitant]
     Route: 065
  5. MESALAMINE [Concomitant]
     Route: 065
  6. AZATHIOPRINE [Concomitant]
     Route: 065

REACTIONS (1)
  - ILEAL STENOSIS [None]
